FAERS Safety Report 6069515-7 (Version None)
Quarter: 2009Q1

REPORT INFORMATION
  Report Type: 
  Country: None (occurrence: None)
  Receive Date: 20090206
  Receipt Date: 20090203
  Transmission Date: 20090719
  Serious: Yes (Death, Other)
  Sender: FDA-Public Use
  Company Number: US-B.I. PHARMACEUTICALS,INC./RIDGEFIELD-2009-BP-01301BP

PATIENT
  Age: 77 Year
  Sex: Female

DRUGS (1)
  1. MELOXICAM [Suspect]
     Indication: TENDONITIS
     Dosage: 30MG
     Route: 048
     Dates: start: 20090108

REACTIONS (2)
  - ARTERIOSCLEROSIS CORONARY ARTERY [None]
  - OVERDOSE [None]
